FAERS Safety Report 10213383 (Version 1)
Quarter: 2014Q2

REPORT INFORMATION
  Report Type: Spontaneous
  Country: US (occurrence: None)
  Receive Date: 20140529
  Receipt Date: 20140529
  Transmission Date: 20141212
  Serious: Yes (Other)
  Sender: FDA-Public Use
  Company Number: 2014AP003122

PATIENT
  Age: 68 Year
  Sex: Female

DRUGS (9)
  1. RANITIDINE [Suspect]
     Indication: PRODUCT USED FOR UNKNOWN INDICATION
  2. OMEPRAZOLE [Suspect]
     Indication: PRODUCT USED FOR UNKNOWN INDICATION
  3. NUVIGIL (ARMODAFINIL) [Suspect]
     Indication: SLEEP APNOEA SYNDROME
     Dosage: 250 UNK, UNK
  4. MORPHINE SULFATE (MORPHINE SULFATE) INJECTION [Suspect]
     Indication: PRODUCT USED FOR UNKNOWN INDICATION
  5. METHADONE (METHADONE) [Concomitant]
  6. DOMPERIDONE (DOMPERIDONE) [Concomitant]
  7. ROBAXIN (METHOCARBAMOL) [Concomitant]
  8. ANTIVERT (MECLOZINE HYDROCHLORIDE, NICOTINIC ACID) [Concomitant]
  9. TYLENOL (PARACETAMOL) [Concomitant]

REACTIONS (17)
  - Serotonin syndrome [None]
  - Pain [None]
  - Gastrointestinal motility disorder [None]
  - Abdominal discomfort [None]
  - Initial insomnia [None]
  - Insomnia [None]
  - Insomnia [None]
  - Nausea [None]
  - Cough [None]
  - Dysphonia [None]
  - Weight decreased [None]
  - Somnolence [None]
  - Wrong technique in drug usage process [None]
  - Drug administration error [None]
  - Drug dose omission [None]
  - Drug ineffective [None]
  - Drug interaction [None]
